FAERS Safety Report 7162458-7 (Version None)
Quarter: 2010Q4

REPORT INFORMATION
  Report Type: 
  Country: None (occurrence: None)
  Receive Date: 20101215
  Receipt Date: 20091105
  Transmission Date: 20110411
  Serious: Yes (Other)
  Sender: FDA-Public Use
  Company Number: DE-PFIZER INC-2009284711

PATIENT
  Age: 14 Year
  Sex: Male
  Weight: 35 kg

DRUGS (9)
  1. LYRICA [Suspect]
     Indication: NEURALGIA
     Dosage: 75 MG/24H
     Route: 048
     Dates: start: 20091008
  2. LYRICA [Suspect]
     Indication: DEMYELINATION
  3. URAPIDIL [Concomitant]
     Indication: RENAL HYPERTENSION
     Dosage: UNK
     Route: 042
     Dates: start: 20091001
  4. NIFEDIPINE [Concomitant]
     Indication: RENAL HYPERTENSION
     Dosage: UNK
     Route: 042
     Dates: start: 20091001
  5. HEPARIN [Concomitant]
     Indication: THROMBOSIS PROPHYLAXIS
     Dosage: 100 IU/KG, 1X/DAY
     Dates: start: 20091001, end: 20091009
  6. VERAPAMIL [Concomitant]
     Indication: RENAL HYPERTENSION
     Route: 048
  7. BELOC ZOK [Concomitant]
     Indication: RENAL HYPERTENSION
     Route: 048
  8. RAMIPRIL [Concomitant]
     Indication: RENAL HYPERTENSION
     Route: 048
  9. IRON [Concomitant]
     Indication: NEPHROGENIC ANAEMIA
     Dosage: UNK
     Route: 042
     Dates: start: 20091001

REACTIONS (1)
  - RENAL FAILURE CHRONIC [None]
